FAERS Safety Report 21440620 (Version 1)
Quarter: 2022Q4

REPORT INFORMATION
  Report Type: Spontaneous
  Country: US (occurrence: None)
  Receive Date: 20221010
  Receipt Date: 20221010
  Transmission Date: 20230113
  Serious: Yes (Other)
  Sender: FDA-Public Use
  Company Number: None

PATIENT
  Age: 22 Year
  Sex: Female
  Weight: 71.21 kg

DRUGS (5)
  1. NEXPLANON [Suspect]
     Active Substance: ETONOGESTREL
  2. CEPHALEXIN [Concomitant]
     Active Substance: CEPHALEXIN
  3. SULFAMETHOXAZOLE [Concomitant]
     Active Substance: SULFAMETHOXAZOLE
  4. IBUPROFEN [Concomitant]
     Active Substance: IBUPROFEN
  5. TYLENOL [Concomitant]
     Active Substance: ACETAMINOPHEN

REACTIONS (10)
  - Localised infection [None]
  - Patient-device incompatibility [None]
  - Movement disorder [None]
  - Pain [None]
  - Crying [None]
  - Implant site cellulitis [None]
  - Abscess [None]
  - Wound [None]
  - Pyrexia [None]
  - Implant site swelling [None]

NARRATIVE: CASE EVENT DATE: 20221005
